FAERS Safety Report 18090266 (Version 11)
Quarter: 2021Q2

REPORT INFORMATION
  Report Type: Report from Study
  Country: US (occurrence: US)
  Receive Date: 20200730
  Receipt Date: 20210417
  Transmission Date: 20210717
  Serious: No
  Sender: FDA-Public Use
  Company Number: NVSC2020US213066

PATIENT
  Age: 54 Year
  Sex: Female

DRUGS (1)
  1. ENTRESTO [Suspect]
     Active Substance: SACUBITRIL\VALSARTAN
     Indication: PRODUCT USED FOR UNKNOWN INDICATION
     Dosage: UNK UNK, BID
     Route: 048
     Dates: start: 20200721

REACTIONS (11)
  - Throat clearing [Unknown]
  - Weight bearing difficulty [Unknown]
  - Hypotension [Not Recovered/Not Resolved]
  - Weight decreased [Unknown]
  - Dizziness [Unknown]
  - Gait disturbance [Unknown]
  - Depressed mood [Unknown]
  - Weight fluctuation [Unknown]
  - Crepitations [Unknown]
  - Fatigue [Unknown]
  - Feeling abnormal [Unknown]

NARRATIVE: CASE EVENT DATE: 20200721
